FAERS Safety Report 8454908 (Version 2)
Quarter: 2012Q4

REPORT INFORMATION
  Report Type: 
  Country: JP (occurrence: JP)
  Receive Date: 20120312
  Receipt Date: 20120927
  Transmission Date: 20130627
  Serious: Yes (Death, Hospitalization, Other)
  Sender: FDA-Public Use
  Company Number: JP-ROCHE-733902

PATIENT
  Age: 54 Year
  Sex: Male
  Weight: 62 kg

DRUGS (6)
  1. AVASTIN [Suspect]
     Indication: COLON CANCER METASTATIC
     Route: 041
     Dates: start: 20100823, end: 20101004
  2. XELODA [Suspect]
     Indication: COLON CANCER METASTATIC
     Dosage: NOTE: DOSAGE IS UNCERTAIN.
     Route: 048
     Dates: start: 20100823, end: 20101213
  3. ELPLAT [Concomitant]
     Indication: COLON CANCER METASTATIC
     Dosage: Dosage is uncertain
     Route: 041
     Dates: start: 20100823, end: 2010
  4. ELPLAT [Concomitant]
     Route: 065
     Dates: start: 20101025, end: 2010
  5. IRINOTECAN HYDROCHLORIDE [Concomitant]
     Indication: COLON CANCER METASTATIC
     Dosage: Dosage is uncertain
     Route: 041
     Dates: start: 201010
  6. TS-1 [Concomitant]
     Indication: COLON CANCER METASTATIC
     Dosage: Dosage is uncertain
     Route: 048
     Dates: start: 201012

REACTIONS (4)
  - Hepatic failure [Fatal]
  - Renal failure [Fatal]
  - Peritonitis [Unknown]
  - Duodenal ulcer perforation [Recovered/Resolved]
